FAERS Safety Report 4748451-X (Version None)
Quarter: 2005Q3

REPORT INFORMATION
  Report Type: 
  Country: None (occurrence: None)
  Receive Date: 20050817
  Receipt Date: 20050518
  Transmission Date: 20060218
  Serious: Yes (Other)
  Sender: FDA-Public Use
  Company Number: PHEH2005US05675

PATIENT
  Age: 61 Year
  Sex: Female

DRUGS (4)
  1. GLEEVEC [Suspect]
     Indication: THYMIC CANCER METASTATIC
     Dosage: 400 MG,QD,ORAL
     Route: 048
     Dates: start: 20050115
  2. ZOLOFT [Concomitant]
  3. ATIVAN [Concomitant]
  4. MOTRIN [Concomitant]

REACTIONS (3)
  - DYSPNOEA [None]
  - PERICARDIAL EFFUSION [None]
  - PLEURAL EFFUSION [None]
